FAERS Safety Report 5678663-2 (Version None)
Quarter: 2008Q1

REPORT INFORMATION
  Report Type: 
  Country: None (occurrence: None)
  Receive Date: 20080320
  Receipt Date: 20080307
  Transmission Date: 20080703
  Serious: Yes (Hospitalization)
  Sender: FDA-Public Use
  Company Number: 2008SP004792

PATIENT
  Age: 31 Year
  Sex: Male

DRUGS (4)
  1. CLARITIN [Suspect]
     Indication: ANAPHYLACTIC SHOCK
     Dosage: 10 MG; BID; PO
     Route: 048
     Dates: start: 20071012, end: 20071027
  2. ALVEDON [Concomitant]
  3. CIALIS [Concomitant]
  4. IPREN [Concomitant]

REACTIONS (1)
  - PARKINSONISM [None]
